FAERS Safety Report 5321821-7 (Version None)
Quarter: 2007Q2

REPORT INFORMATION
  Report Type: 
  Country: None (occurrence: None)
  Receive Date: 20070510
  Receipt Date: 20070430
  Transmission Date: 20071010
  Serious: Yes (Hospitalization, Other)
  Sender: FDA-Public Use
  Company Number: US-ELI_LILLY_AND_COMPANY-US200606001441

PATIENT
  Age: 27 Year
  Sex: Female

DRUGS (4)
  1. CYMBALTA [Suspect]
     Indication: PAIN
     Dosage: UNK, UNK
     Dates: start: 20060118
  2. ULTRAM [Concomitant]
     Dosage: UNK, UNK
     Dates: start: 20060118, end: 20060126
  3. REBIF [Concomitant]
     Indication: MULTIPLE SCLEROSIS
     Dosage: 44 UG, 3/W
     Dates: start: 20051115
  4. LAMICTAL [Concomitant]

REACTIONS (6)
  - AMNESIA [None]
  - CONVULSION [None]
  - FACIAL BONES FRACTURE [None]
  - FALL [None]
  - GRAND MAL CONVULSION [None]
  - INJECTION SITE MASS [None]
